FAERS Safety Report 25273254 (Version 1)
Quarter: 2025Q2

REPORT INFORMATION
  Report Type: Spontaneous
  Country: US (occurrence: US)
  Receive Date: 20250506
  Receipt Date: 20250506
  Transmission Date: 20250716
  Serious: Yes (Other)
  Sender: AMNEAL
  Company Number: US-AMNEAL PHARMACEUTICALS-2024-AMRX-01825

PATIENT
  Sex: Female
  Weight: 13.605 kg

DRUGS (2)
  1. VIGABATRIN [Suspect]
     Active Substance: VIGABATRIN
     Indication: Infantile spasms
     Dosage: 700 MILLIGRAM (500MG POWDER FOR PACKET AND 14 ML), 2 /DAY
     Route: 048
  2. SAPRIL [Concomitant]
     Indication: Product used for unknown indication
     Route: 065

REACTIONS (2)
  - Seizure [Not Recovered/Not Resolved]
  - Product use issue [Unknown]
